FAERS Safety Report 12985472 (Version 1)
Quarter: 2016Q4

REPORT INFORMATION
  Report Type: Spontaneous
  Country: GB (occurrence: GB)
  Receive Date: 20161130
  Receipt Date: 20161130
  Transmission Date: 20170207
  Serious: Yes (Other)
  Sender: FDA-Public Use
  Company Number: PHHY2016GB159469

PATIENT
  Age: 32 Year
  Sex: Female
  Weight: 95.25 kg

DRUGS (1)
  1. CLARITHROMYCIN. [Suspect]
     Active Substance: CLARITHROMYCIN
     Indication: LOWER RESPIRATORY TRACT INFECTION
     Dosage: 250 MG, BID
     Route: 048
     Dates: start: 20161108, end: 20161109

REACTIONS (11)
  - Dysgeusia [Recovering/Resolving]
  - Abdominal pain [Not Recovered/Not Resolved]
  - Hyperhidrosis [Recovering/Resolving]
  - Somnolence [Recovering/Resolving]
  - Dizziness postural [Not Recovered/Not Resolved]
  - Nausea [Recovering/Resolving]
  - Dry mouth [Not Recovered/Not Resolved]
  - Malaise [Recovering/Resolving]
  - Maternal exposure during pregnancy [Unknown]
  - Tremor [Not Recovered/Not Resolved]
  - Back pain [Recovering/Resolving]

NARRATIVE: CASE EVENT DATE: 20161108
